FAERS Safety Report 7536522-4 (Version None)
Quarter: 2011Q2

REPORT INFORMATION
  Report Type: 
  Country: None (occurrence: None)
  Receive Date: 20110609
  Receipt Date: 20110603
  Transmission Date: 20111010
  Serious: Yes (Life-Threatening)
  Sender: FDA-Public Use
  Company Number: JP-SANOFI-AVENTIS-2011SA034865

PATIENT
  Sex: Male

DRUGS (12)
  1. OXALIPLATIN [Suspect]
     Indication: COLON CANCER
     Route: 041
     Dates: start: 20101108, end: 20101108
  2. ZOSYN [Concomitant]
     Indication: INFECTION
     Route: 041
     Dates: start: 20110502, end: 20110507
  3. TS-1 [Suspect]
     Route: 048
     Dates: start: 20110418, end: 20110502
  4. POLARAMINE [Concomitant]
     Indication: PREMEDICATION
     Route: 041
     Dates: start: 20101108, end: 20110418
  5. ANTITHROMBIN III [Concomitant]
     Indication: DISSEMINATED INTRAVASCULAR COAGULATION
     Route: 041
     Dates: start: 20110502, end: 20110505
  6. TS-1 [Suspect]
     Indication: COLON CANCER
     Route: 048
     Dates: start: 20101108, end: 20101122
  7. IMMUNE GLOBULIN INTRAVENOUS (HUMAN) [Concomitant]
     Indication: HYPOALBUMINAEMIA
     Route: 041
     Dates: start: 20110502, end: 20110504
  8. OMEPRAZOLE [Concomitant]
     Indication: ULCER
     Route: 048
     Dates: start: 20110502, end: 20110511
  9. OXALIPLATIN [Suspect]
     Route: 041
     Dates: start: 20110418, end: 20110418
  10. DEXAMETHASONE [Concomitant]
     Indication: PREMEDICATION
     Route: 041
     Dates: start: 20101108, end: 20110418
  11. NOREPINEPHRINE BITARTRATE [Concomitant]
     Indication: HYPOTENSION
     Route: 041
     Dates: start: 20110502, end: 20110511
  12. ELASPOL [Concomitant]
     Indication: INFLAMMATION
     Route: 041
     Dates: start: 20110509

REACTIONS (6)
  - CEREBRAL HAEMORRHAGE [None]
  - PNEUMONIA [None]
  - RESPIRATORY FAILURE [None]
  - PLATELET COUNT DECREASED [None]
  - DISSEMINATED INTRAVASCULAR COAGULATION [None]
  - ASPIRATION [None]
